FAERS Safety Report 7461177-7 (Version None)
Quarter: 2011Q2

REPORT INFORMATION
  Report Type: 
  Country: None (occurrence: None)
  Receive Date: 20110505
  Receipt Date: 20110426
  Transmission Date: 20111010
  Serious: Yes (Other)
  Sender: FDA-Public Use
  Company Number: US-ASTRAZENECA-2011SE12726

PATIENT
  Age: 22056 Day
  Sex: Female
  Weight: 70.3 kg

DRUGS (5)
  1. BYSTOLIC [Concomitant]
     Indication: SINUS TACHYCARDIA
     Route: 048
     Dates: start: 20101208
  2. GLUCOPHAGE [Concomitant]
     Indication: DIABETES MELLITUS
     Route: 048
     Dates: start: 20100530
  3. CRESTOR [Suspect]
     Indication: CARDIOVASCULAR DISORDER
     Route: 048
     Dates: start: 20101227
  4. CRESTOR [Suspect]
     Indication: DIABETES MELLITUS
     Route: 048
     Dates: start: 20101227
  5. CRESTOR [Suspect]
     Indication: DYSLIPIDAEMIA
     Route: 048
     Dates: start: 20101227

REACTIONS (1)
  - HIGH DENSITY LIPOPROTEIN DECREASED [None]
